FAERS Safety Report 25247467 (Version 2)
Quarter: 2025Q2

REPORT INFORMATION
  Report Type: Report from Study
  Country: JP (occurrence: JP)
  Receive Date: 20250428
  Receipt Date: 20250530
  Transmission Date: 20250716
  Serious: Yes (Hospitalization)
  Sender: RIGEL PHARMACEUTICALS
  Company Number: JP-RIGEL Pharmaceuticals, INC- 20250300171

PATIENT
  Age: 60 Year
  Sex: Female
  Weight: 49.4 kg

DRUGS (8)
  1. FOSTAMATINIB DISODIUM [Suspect]
     Active Substance: FOSTAMATINIB DISODIUM
     Indication: Thrombocytopenic purpura
     Dosage: 100 MG BID
     Route: 048
     Dates: start: 20230601, end: 20230906
  2. FOSTAMATINIB DISODIUM [Suspect]
     Active Substance: FOSTAMATINIB DISODIUM
     Dosage: 150 MG BID
     Route: 048
     Dates: start: 20230907, end: 20240731
  3. PREDNISOLONE [Concomitant]
     Active Substance: PREDNISOLONE
     Indication: Thrombocytopenic purpura
     Dosage: 9 MG, QD
     Route: 048
     Dates: end: 20230906
  4. ROMIPLOSTIM [Concomitant]
     Active Substance: ROMIPLOSTIM
     Indication: Thrombocytopenic purpura
     Dosage: 100 MICROGRAM, QW
     Route: 058
     Dates: end: 20240411
  5. ROMIPLOSTIM [Concomitant]
     Active Substance: ROMIPLOSTIM
     Dosage: 150 MICROGRAM, QW
     Route: 058
     Dates: start: 20240418, end: 20240425
  6. ROMIPLOSTIM [Concomitant]
     Active Substance: ROMIPLOSTIM
     Dosage: 200 MICROGRAM, QW
     Route: 058
     Dates: end: 20240613
  7. ROMIPLOSTIM [Concomitant]
     Active Substance: ROMIPLOSTIM
     Dosage: 250 MICROGRAM, QW
     Route: 058
     Dates: start: 20240620, end: 20240725
  8. ROMIPLOSTIM [Concomitant]
     Active Substance: ROMIPLOSTIM
     Dosage: 450 MICROGRAM, Q3W
     Route: 058
     Dates: start: 20240801

REACTIONS (3)
  - Anaemia [Recovered/Resolved]
  - Hepatic function abnormal [Recovering/Resolving]
  - Diarrhoea [Recovered/Resolved]

NARRATIVE: CASE EVENT DATE: 20230615
